FAERS Safety Report 15090313 (Version 2)
Quarter: 2018Q2

REPORT INFORMATION
  Report Type: Report from Study
  Country: BR (occurrence: BR)
  Receive Date: 20180629
  Receipt Date: 20180629
  Transmission Date: 20180711
  Serious: Yes (Hospitalization, Other)
  Sender: FDA-Public Use
  Company Number: PHHY2018BR031365

PATIENT
  Age: 70 Year
  Sex: Female
  Weight: 64 kg

DRUGS (2)
  1. DIOVAN AMLO FIX [Suspect]
     Active Substance: AMLODIPINE\VALSARTAN
     Indication: HYPERTENSION
     Dosage: 1 DF (AMLODIPINE 5MG, VALSARTAN 160MG), QD
     Route: 048
  2. LOSARTAN. [Suspect]
     Active Substance: LOSARTAN
     Indication: HYPERTENSION
     Dosage: 1 DF (20MG), QD
     Route: 048

REACTIONS (11)
  - Cataract [Recovered/Resolved]
  - Dacryostenosis acquired [Not Recovered/Not Resolved]
  - Drug ineffective [Recovered/Resolved]
  - Chest injury [Unknown]
  - Fall [Unknown]
  - Eye injury [Unknown]
  - Astigmatism [Recovered/Resolved]
  - Eye discharge [Not Recovered/Not Resolved]
  - Eye irritation [Not Recovered/Not Resolved]
  - Varicose vein [Recovering/Resolving]
  - Visual impairment [Unknown]

NARRATIVE: CASE EVENT DATE: 20180415
